FAERS Safety Report 8289640-X (Version None)
Quarter: 2012Q2

REPORT INFORMATION
  Report Type: 
  Country: None (occurrence: None)
  Receive Date: 20120417
  Receipt Date: 20120412
  Transmission Date: 20120825
  Serious: Yes (Other)
  Sender: FDA-Public Use
  Company Number: US-PFIZER INC-2010131134

PATIENT
  Sex: Female

DRUGS (4)
  1. SUTENT [Suspect]
     Indication: METASTATIC RENAL CELL CARCINOMA
     Dosage: 50 MG, 1X/DAY
     Route: 048
     Dates: start: 20100923, end: 20110301
  2. ESTRADIOL [Concomitant]
     Indication: OESTROGEN REPLACEMENT THERAPY
     Dosage: 5 MG, UNK
  3. IMODIUM [Concomitant]
     Indication: DIARRHOEA
     Dosage: UNK, AS NEEDED
     Dates: start: 20101011
  4. ATENOLOL [Concomitant]
     Indication: TACHYCARDIA
     Dosage: 5 MG, UNK
     Dates: start: 20101011

REACTIONS (6)
  - HEART RATE IRREGULAR [None]
  - RASH [None]
  - FATIGUE [None]
  - DIARRHOEA HAEMORRHAGIC [None]
  - PROCTALGIA [None]
  - DIZZINESS [None]
